FAERS Safety Report 11886514 (Version 2)
Quarter: 2016Q1

REPORT INFORMATION
  Report Type: Spontaneous
  Country: US (occurrence: US)
  Receive Date: 20160104
  Receipt Date: 20160225
  Transmission Date: 20160526
  Serious: Yes (Other)
  Sender: FDA-Public Use
  Company Number: US-TEVA-620435USA

PATIENT
  Sex: Female

DRUGS (1)
  1. CENESTIN [Suspect]
     Active Substance: ESTROGENS, CONJUGATED SYNTHETIC A
     Indication: MENOPAUSAL SYMPTOMS
     Route: 065

REACTIONS (5)
  - Malaise [Unknown]
  - Insomnia [Unknown]
  - Nervousness [Unknown]
  - Drug dose omission [Unknown]
  - Systemic lupus erythematosus [Not Recovered/Not Resolved]
